FAERS Safety Report 17399884 (Version 1)
Quarter: 2020Q1

REPORT INFORMATION
  Report Type: Spontaneous
  Country: US (occurrence: US)
  Receive Date: 20200211
  Receipt Date: 20200211
  Transmission Date: 20200409
  Serious: No
  Sender: FDA-Public Use
  Company Number: US-SHIRE-US202005030

PATIENT
  Age: 59 Year
  Sex: Female

DRUGS (1)
  1. GAMMAGARD LIQUID [Suspect]
     Active Substance: HUMAN IMMUNOGLOBULIN G
     Indication: PRIMARY IMMUNODEFICIENCY SYNDROME
     Route: 051

REACTIONS (8)
  - Sinonasal obstruction [Unknown]
  - Swelling [Unknown]
  - Ear discomfort [Unknown]
  - Immunoglobulins abnormal [Unknown]
  - Headache [Unknown]
  - Hypertension [Unknown]
  - Feeling abnormal [Unknown]
  - Mood swings [Unknown]
